FAERS Safety Report 8222804-X (Version None)
Quarter: 2012Q1

REPORT INFORMATION
  Report Type: 
  Country: None (occurrence: None)
  Receive Date: 20120320
  Receipt Date: 20120312
  Transmission Date: 20120608
  Serious: Yes (Life-Threatening, Hospitalization)
  Sender: FDA-Public Use
  Company Number: CA-JNJFOC-20120306216

PATIENT
  Age: 52 Year
  Sex: Male
  Weight: 91 kg

DRUGS (3)
  1. NAPROXEN SODIUM [Concomitant]
  2. SIMPONI [Suspect]
     Indication: RHEUMATOID ARTHRITIS
     Route: 058
     Dates: start: 20120123, end: 20120210
  3. LEFLUNOMIDE [Concomitant]

REACTIONS (3)
  - RENAL FAILURE ACUTE [None]
  - CARDIAC FAILURE [None]
  - MYELOID LEUKAEMIA [None]
